APPROVED DRUG PRODUCT: DESIPRAMINE HYDROCHLORIDE
Active Ingredient: DESIPRAMINE HYDROCHLORIDE
Strength: 100MG
Dosage Form/Route: TABLET;ORAL
Application: A071867 | Product #001
Applicant: USL PHARMA INC
Approved: Sep 9, 1987 | RLD: No | RS: No | Type: DISCN